FAERS Safety Report 8576597-7 (Version None)
Quarter: 2012Q3

REPORT INFORMATION
  Report Type: 
  Country: None (occurrence: None)
  Receive Date: 20120807
  Receipt Date: 20120730
  Transmission Date: 20120928
  Serious: Yes (Other)
  Sender: FDA-Public Use
  Company Number: US-JNJFOC-20120700084

PATIENT
  Sex: Male
  Weight: 25.4 kg

DRUGS (3)
  1. CONCERTA [Suspect]
     Indication: ATTENTION DEFICIT/HYPERACTIVITY DISORDER
     Route: 048
     Dates: start: 20120622
  2. METHYLPHENIDATE [Suspect]
     Indication: ATTENTION DEFICIT/HYPERACTIVITY DISORDER
     Route: 065
     Dates: end: 20120720
  3. CONCERTA [Suspect]
     Route: 048
     Dates: start: 20120721

REACTIONS (4)
  - NEGATIVISM [None]
  - DRUG INEFFECTIVE [None]
  - AGGRESSION [None]
  - DECREASED APPETITE [None]
